FAERS Safety Report 6110261-9 (Version None)
Quarter: 2009Q1

REPORT INFORMATION
  Report Type: 
  Country: None (occurrence: None)
  Receive Date: 20090310
  Receipt Date: 20090225
  Transmission Date: 20090719
  Serious: Yes (Other)
  Sender: FDA-Public Use
  Company Number: PHHY2009DE01993

PATIENT
  Sex: Female

DRUGS (6)
  1. PROVAS [Suspect]
     Indication: HYPERTENSION
     Dosage: 80 MG PER DAY
     Route: 048
     Dates: start: 20060703, end: 20090126
  2. PROVAS [Suspect]
     Dosage: 0.5 DF (80 MG), PER DAY
     Route: 048
     Dates: start: 20090127
  3. VITAMIN B COMPLEX CAP [Concomitant]
     Dosage: UNK
  4. EUTHYROX [Concomitant]
     Dosage: 75 UG, UNK
     Route: 048
     Dates: start: 20030101
  5. APONAL [Concomitant]
     Indication: DEPRESSION
     Dosage: 25 MG, PER DAY
     Route: 048
     Dates: start: 20030312
  6. CALCIUM CARBONATE W/COLECALCIFEROL [Concomitant]
     Dosage: 1 DF, BID
     Route: 048
     Dates: start: 20030101

REACTIONS (5)
  - ARTHRALGIA [None]
  - HYPOAESTHESIA [None]
  - MYALGIA [None]
  - PAIN IN EXTREMITY [None]
  - PARAESTHESIA [None]
